FAERS Safety Report 24981579 (Version 1)
Quarter: 2025Q1

REPORT INFORMATION
  Report Type: Spontaneous
  Country: PT (occurrence: PT)
  Receive Date: 20250218
  Receipt Date: 20250218
  Transmission Date: 20250408
  Serious: Yes (Other)
  Sender: PFIZER
  Company Number: None

PATIENT
  Age: 37 Year
  Sex: Female
  Weight: 70 kg

DRUGS (4)
  1. TRASTUZUMAB [Suspect]
     Active Substance: TRASTUZUMAB
     Indication: Breast cancer female
     Dosage: 420 MG, EVERY 3 WEEKS (3/3 WEEKS - 1ST TIME; INFUSED 1/2H OF TRASTUZUMAB IN SALINE SOLUTION 250ML)
     Dates: start: 20250130, end: 20250130
  2. DOCETAXEL [Suspect]
     Active Substance: DOCETAXEL
     Indication: Breast cancer female
     Dates: start: 20250130, end: 20250131
  3. SODIUM CHLORIDE [Concomitant]
     Active Substance: SODIUM CHLORIDE
     Dates: start: 20250130, end: 20250130
  4. SODIUM CHLORIDE [Concomitant]
     Active Substance: SODIUM CHLORIDE
     Dates: start: 20250130, end: 20250131

REACTIONS (2)
  - Chest discomfort [Recovered/Resolved]
  - Throat tightness [Recovered/Resolved]

NARRATIVE: CASE EVENT DATE: 20250130
